FAERS Safety Report 8992751 (Version 2)
Quarter: 2013Q1

REPORT INFORMATION
  Report Type: Report from Study
  Country: US (occurrence: US)
  Receive Date: 20130102
  Receipt Date: 20130114
  Transmission Date: 20140127
  Serious: Yes (Hospitalization)
  Sender: FDA-Public Use
  Company Number: US-ROCHE-1175407

PATIENT
  Sex: 0

DRUGS (2)
  1. ALTEPLASE [Suspect]
     Indication: GRAFT THROMBOSIS
     Route: 065
  2. HEPARIN [Concomitant]
     Indication: GRAFT THROMBOSIS
     Dosage: 3,000 - 5,000 U IN A TOTAL VOLUME OF 5 ML
     Route: 065

REACTIONS (1)
  - Embolism arterial [Recovered/Resolved]
